FAERS Safety Report 6808419-6 (Version None)
Quarter: 2010Q2

REPORT INFORMATION
  Report Type: 
  Country: None (occurrence: None)
  Receive Date: 20100629
  Receipt Date: 20090602
  Transmission Date: 20101027
  Serious: No
  Sender: FDA-Public Use
  Company Number: US-PFIZER INC-2009218842

PATIENT
  Sex: Male

DRUGS (3)
  1. VIAGRA [Suspect]
     Indication: SEXUAL DYSFUNCTION
     Dosage: UNK
  2. XANAX [Suspect]
     Dosage: UNK
  3. RISPERDAL [Concomitant]
     Indication: ANXIETY
     Dosage: UNK

REACTIONS (2)
  - ANXIETY [None]
  - ERECTILE DYSFUNCTION [None]
